FAERS Safety Report 6146387-3 (Version None)
Quarter: 2009Q2

REPORT INFORMATION
  Report Type: 
  Country: None (occurrence: None)
  Receive Date: 20090407
  Receipt Date: 20090403
  Transmission Date: 20091009
  Serious: Yes (Death)
  Sender: FDA-Public Use
  Company Number: GB-BRISTOL-MYERS SQUIBB COMPANY-14573182

PATIENT
  Age: 88 Year
  Sex: Male
  Weight: 69 kg

DRUGS (7)
  1. ARIPIPRAZOLE [Suspect]
     Indication: ABNORMAL BEHAVIOUR
     Route: 048
     Dates: start: 20080901
  2. ARIPIPRAZOLE [Suspect]
     Indication: CONFUSIONAL STATE
     Route: 048
     Dates: start: 20080901
  3. ARIPIPRAZOLE [Suspect]
     Indication: DEMENTIA
     Route: 048
     Dates: start: 20080901
  4. ASPIRIN [Suspect]
     Indication: HYPERTENSION
     Route: 048
  5. BISOPROLOL [Concomitant]
     Indication: HYPERTENSION
     Route: 048
  6. RAMIPRIL [Concomitant]
     Indication: HYPERTENSION
     Route: 048
  7. RIVASTIGMINE TARTRATE [Concomitant]
     Indication: DEMENTIA

REACTIONS (1)
  - HAEMORRHAGIC STROKE [None]
